FAERS Safety Report 4753455-7 (Version None)
Quarter: 2005Q3

REPORT INFORMATION
  Report Type: 
  Country: None (occurrence: None)
  Receive Date: 20050824
  Receipt Date: 20050810
  Transmission Date: 20060218
  Serious: Yes (Congenital Anomaly)
  Sender: FDA-Public Use
  Company Number: S05-SWI-02528-02

PATIENT
  Sex: Female

DRUGS (2)
  1. CIPRALEX (ESCITALOPRAM) [Suspect]
     Indication: ANXIETY
     Dosage: 15 MG QD TRANSPLACENTAL
     Route: 064
     Dates: start: 20030812, end: 20040505
  2. CIPRALEX (ESCITALOPRAM) [Suspect]
     Indication: PALPITATIONS
     Dosage: 15 MG QD TRANSPLACENTAL
     Route: 064
     Dates: start: 20030812, end: 20040505

REACTIONS (5)
  - BRADYCARDIA FOETAL [None]
  - CAESAREAN SECTION [None]
  - CONGENITAL ANOMALY [None]
  - DRUG EXPOSURE DURING PREGNANCY [None]
  - FOETAL GROWTH RETARDATION [None]
